FAERS Safety Report 21042166 (Version 1)
Quarter: 2022Q3

REPORT INFORMATION
  Report Type: Spontaneous
  Country: GB (occurrence: GB)
  Receive Date: 20220705
  Receipt Date: 20220705
  Transmission Date: 20221027
  Serious: Yes (Hospitalization)
  Sender: FDA-Public Use
  Company Number: GB-NOVARTISPH-NVSC2022GB148410

PATIENT

DRUGS (2)
  1. MOMETASONE [Suspect]
     Active Substance: MOMETASONE
     Indication: Adverse drug reaction
     Dosage: UNK
     Route: 065
     Dates: start: 20170501
  2. MOMETASONE [Suspect]
     Active Substance: MOMETASONE
     Indication: Eczema

REACTIONS (1)
  - Blood albumin decreased [Recovering/Resolving]

NARRATIVE: CASE EVENT DATE: 20211130
